FAERS Safety Report 13718125 (Version 1)
Quarter: 2017Q3

REPORT INFORMATION
  Report Type: Spontaneous
  Country: US (occurrence: US)
  Receive Date: 20170705
  Receipt Date: 20170705
  Transmission Date: 20171127
  Serious: Yes (Hospitalization)
  Sender: FDA-Public Use
  Company Number: US-LPDUSPRD-20170635

PATIENT
  Age: 20 Year
  Sex: Male
  Weight: 112.4 kg

DRUGS (20)
  1. SODIUM CHLORIDE. [Concomitant]
     Active Substance: SODIUM CHLORIDE
     Dosage: 300 ML
     Route: 065
     Dates: start: 20170427
  2. MIRCERA [Suspect]
     Active Substance: METHOXY POLYETHYLENE GLYCOL-EPOETIN BETA
     Route: 040
     Dates: start: 20170427, end: 20170427
  3. HEPARIN [Concomitant]
     Active Substance: HEPARIN SODIUM
     Dosage: DOSE UNK, INFUSION PUMP
     Route: 042
  4. CALCITRIOL. [Concomitant]
     Active Substance: CALCITRIOL
     Dosage: 6 TOTAL
     Route: 048
     Dates: start: 20170427
  5. DELTASONE [Concomitant]
     Active Substance: PREDNISONE
     Route: 048
     Dates: start: 20160921
  6. COLECALCIFEROL [Concomitant]
     Active Substance: CHOLECALCIFEROL
     Dosage: AT NOON
     Route: 048
     Dates: start: 20160921
  7. VITAMIN D [Concomitant]
     Active Substance: CHOLECALCIFEROL
     Dosage: 7142.8571 IUM (5000 IUM 1/WK)
     Route: 048
  8. PROGRAF [Concomitant]
     Active Substance: TACROLIMUS\TACROLIMUS ANHYDROUS
     Route: 065
     Dates: start: 20161219
  9. CELLCEPT [Concomitant]
     Active Substance: MYCOPHENOLATE MOFETIL\MYCOPHENOLATE MOFETIL HYDROCHLORIDE
     Route: 048
     Dates: start: 20170120
  10. MIRALAX [Concomitant]
     Active Substance: POLYETHYLENE GLYCOL 3350
     Route: 048
     Dates: start: 20160921
  11. LOPRESSOR [Concomitant]
     Active Substance: METOPROLOL TARTRATE
     Route: 048
     Dates: start: 20160921
  12. SODIUM POLYSTYRENE SULFONATE. [Concomitant]
     Active Substance: SODIUM POLYSTYRENE SULFONATE
     Dosage: UNKNOWN
     Route: 065
     Dates: start: 20160921
  13. PNEUMOVAX 23 [Concomitant]
     Active Substance: PNEUMOCOCCAL VACCINE, POLYVALENT 23
     Dosage: ONCE
     Route: 030
  14. TUMS [Concomitant]
     Active Substance: CALCIUM CARBONATE
     Route: 065
  15. NORVASC [Concomitant]
     Active Substance: AMLODIPINE BESYLATE
     Route: 048
     Dates: start: 20160921
  16. VENOFER [Suspect]
     Active Substance: IRON SUCROSE
     Dosage: 100 MG
     Route: 040
     Dates: start: 20170415, end: 20170427
  17. PRILOSEC [Concomitant]
     Active Substance: OMEPRAZOLE MAGNESIUM
     Route: 048
     Dates: start: 20160921
  18. SENNA ALEXANDRINA [Concomitant]
     Active Substance: SENNA LEAF
     Route: 048
     Dates: start: 20160921
  19. DIFLUCAN [Concomitant]
     Active Substance: FLUCONAZOLE
     Route: 048
  20. 65 FE [Concomitant]
     Route: 048
     Dates: start: 20160921

REACTIONS (4)
  - Blood pressure increased [Unknown]
  - Pyrexia [Unknown]
  - Nausea [Unknown]
  - Heart rate increased [Unknown]

NARRATIVE: CASE EVENT DATE: 20170415
